FAERS Safety Report 25461414 (Version 2)
Quarter: 2025Q2

REPORT INFORMATION
  Report Type: Report from Study
  Country: CA (occurrence: CA)
  Receive Date: 20250620
  Receipt Date: 20250627
  Transmission Date: 20250716
  Serious: Yes (Death)
  Sender: OTSUKA
  Company Number: CA-OTSUKA-2022_051437

PATIENT
  Sex: Male

DRUGS (1)
  1. ARIPIPRAZOLE [Suspect]
     Active Substance: ARIPIPRAZOLE
     Indication: Product used for unknown indication
     Route: 030

REACTIONS (4)
  - Accident [Fatal]
  - Inappropriate schedule of product administration [Not Recovered/Not Resolved]
  - Treatment noncompliance [Recovered/Resolved]
  - Treatment noncompliance [Recovered/Resolved]
